FAERS Safety Report 25955339 (Version 1)
Quarter: 2025Q4

REPORT INFORMATION
  Report Type: Report from Study
  Country: US (occurrence: US)
  Receive Date: 20251024
  Receipt Date: 20251024
  Transmission Date: 20260117
  Serious: Yes (Hospitalization, Other)
  Sender: IPSEN BIOPHARMACEUTICALS, INC.
  Company Number: US-IPSEN Group, Research and Development-2023-09870

PATIENT
  Age: 67 Year
  Sex: Male
  Weight: 107.3 kg

DRUGS (8)
  1. ONIVYDE [Suspect]
     Active Substance: IRINOTECAN HYDROCHLORIDE
     Indication: Adenocarcinoma gastric
     Dosage: DAY: 1 + 15 OF EVERY 28 DAY CYCLE FOR ALL
     Dates: start: 20230413, end: 20230413
  2. ONIVYDE [Suspect]
     Active Substance: IRINOTECAN HYDROCHLORIDE
     Dosage: DAY: 1 + 15 OF EVERY 28 DAY CYCLE FOR ALL
     Dates: start: 20230511, end: 20230511
  3. OXALIPLATIN [Suspect]
     Active Substance: OXALIPLATIN
     Indication: Adenocarcinoma gastric
     Dates: start: 20230413, end: 20230413
  4. OXALIPLATIN [Suspect]
     Active Substance: OXALIPLATIN
     Dates: start: 20230511, end: 20230511
  5. FLUOROURACIL [Suspect]
     Active Substance: FLUOROURACIL
     Indication: Adenocarcinoma gastric
     Dates: start: 20230413, end: 20230413
  6. FLUOROURACIL [Suspect]
     Active Substance: FLUOROURACIL
     Dates: start: 20230511, end: 20230511
  7. NIVOLUMAB [Suspect]
     Active Substance: NIVOLUMAB
     Indication: Adenocarcinoma gastric
     Dates: start: 20230413, end: 20230413
  8. NIVOLUMAB [Suspect]
     Active Substance: NIVOLUMAB
     Dates: start: 20230511, end: 20230511

REACTIONS (18)
  - Diarrhoea [Recovering/Resolving]
  - Pyrexia [Recovered/Resolved]
  - Adult failure to thrive [Recovering/Resolving]
  - Dysphagia [Unknown]
  - Electrolyte imbalance [Unknown]
  - Colitis ischaemic [Recovered/Resolved]
  - Abdominal pain [Unknown]
  - Abdominal discomfort [Unknown]
  - Enteritis [Unknown]
  - Hyponatraemia [Unknown]
  - Neutropenia [Unknown]
  - Constipation [Unknown]
  - Asthenia [Unknown]
  - Hypomagnesaemia [Unknown]
  - Dehydration [Unknown]
  - Hypokalaemia [Unknown]
  - Hypoalbuminaemia [Unknown]
  - Hypophosphataemia [Unknown]

NARRATIVE: CASE EVENT DATE: 20230419
